FAERS Safety Report 6253206-3 (Version None)
Quarter: 2009Q3

REPORT INFORMATION
  Report Type: 
  Country: None (occurrence: None)
  Receive Date: 20090701
  Receipt Date: 20090626
  Transmission Date: 20100115
  Serious: Yes (Hospitalization, Congenital Anomaly)
  Sender: FDA-Public Use
  Company Number: AU-WYE-G03813709

PATIENT
  Sex: Male

DRUGS (3)
  1. DIMETAPP DM COLOUR FREE COLD + COUGH [Suspect]
     Indication: NASAL CONGESTION
     Dosage: 10 ML ONCE ONLY
     Route: 064
  2. ASCORBIC ACID [Concomitant]
  3. ELEVIT [Concomitant]

REACTIONS (2)
  - NEONATAL RESPIRATORY DISTRESS SYNDROME [None]
  - VENTRICULAR SEPTAL DEFECT [None]
